FAERS Safety Report 18013071 (Version 1)
Quarter: 2020Q3

REPORT INFORMATION
  Report Type: Spontaneous
  Country: US (occurrence: US)
  Receive Date: 20200711
  Receipt Date: 20200711
  Transmission Date: 20201103
  Serious: Yes (Death)
  Sender: FDA-Public Use
  Company Number: None

PATIENT
  Age: 7 Year
  Sex: Male

DRUGS (1)
  1. EVEROLIMUS 2.5 MG/ML [Suspect]
     Active Substance: EVEROLIMUS
     Route: 048
     Dates: start: 20200331, end: 20200428

REACTIONS (1)
  - Death [None]

NARRATIVE: CASE EVENT DATE: 2020
